FAERS Safety Report 7018543-3 (Version None)
Quarter: 2010Q3

REPORT INFORMATION
  Report Type: 
  Country: None (occurrence: None)
  Receive Date: 20100928
  Receipt Date: 20100914
  Transmission Date: 20110219
  Serious: Yes (Life-Threatening)
  Sender: FDA-Public Use
  Company Number: IE-PFIZER INC-2010092353

PATIENT
  Sex: Female
  Weight: 169 kg

DRUGS (5)
  1. ZYVOX [Suspect]
     Indication: CELLULITIS
     Dosage: 600 MG, 2X/DAY
     Route: 042
     Dates: start: 20100721
  2. GENTAMICIN [Concomitant]
     Dosage: 480 MG, 1X/DAY
     Route: 042
     Dates: start: 20100719
  3. CLINDAMYCIN PHOSPHATE [Concomitant]
     Indication: WOUND INFECTION
     Dosage: 900 MG, 3X/DAY
     Route: 042
     Dates: start: 20100719
  4. METRONIDAZOLE [Concomitant]
     Dosage: UNK
  5. CIPROXIN [Concomitant]

REACTIONS (2)
  - CELLULITIS [None]
  - DRUG INEFFECTIVE [None]
